FAERS Safety Report 6198218-3 (Version None)
Quarter: 2009Q2

REPORT INFORMATION
  Report Type: 
  Country: None (occurrence: None)
  Receive Date: 20090515
  Receipt Date: 20081002
  Transmission Date: 20091009
  Serious: Yes (Hospitalization)
  Sender: FDA-Public Use
  Company Number: APP200800944

PATIENT
  Age: 56 Year
  Sex: Female
  Weight: 80 kg

DRUGS (4)
  1. VANCOMYCIN HYDROCHLORIDE [Suspect]
     Indication: OSTEOMYELITIS
     Dosage: 1750 MG, 1 IN  24 HR, INTRAVENOUS
     Route: 042
     Dates: start: 20080709, end: 20080716
  2. GLYBURIDE [Concomitant]
  3. ZOLPIDEM [Concomitant]
  4. PIOGLITAZONE HCL [Concomitant]

REACTIONS (1)
  - RENAL FAILURE ACUTE [None]
